FAERS Safety Report 11523746 (Version 1)
Quarter: 2015Q3

REPORT INFORMATION
  Report Type: Spontaneous
  Country: US (occurrence: US)
  Receive Date: 20150903
  Receipt Date: 20150903
  Transmission Date: 20151125
  Serious: Yes (Other)
  Sender: FDA-Public Use
  Company Number: US-ELI_LILLY_AND_COMPANY-US201304001854

PATIENT
  Sex: Female

DRUGS (3)
  1. CYMBALTA [Suspect]
     Active Substance: DULOXETINE HYDROCHLORIDE
     Dosage: 60 MG, QD
  2. CYMBALTA [Suspect]
     Active Substance: DULOXETINE HYDROCHLORIDE
     Indication: DEPRESSION
     Dosage: 30 MG, QD
  3. TYLENOL [Concomitant]
     Active Substance: ACETAMINOPHEN
     Dosage: UNK, PRN

REACTIONS (10)
  - Fall [Unknown]
  - Injury [Unknown]
  - Dizziness [Unknown]
  - Nausea [Unknown]
  - Serum serotonin increased [Unknown]
  - Head titubation [Not Recovered/Not Resolved]
  - Neck pain [Unknown]
  - Tremor [Not Recovered/Not Resolved]
  - Presyncope [Unknown]
  - Arthralgia [Unknown]
